FAERS Safety Report 5063230-4 (Version None)
Quarter: 2006Q3

REPORT INFORMATION
  Report Type: 
  Country: None (occurrence: None)
  Receive Date: 20060725
  Receipt Date: 20060725
  Transmission Date: 20061208
  Serious: Yes (Hospitalization, Disabling)
  Sender: FDA-Public Use
  Company Number: None

PATIENT
  Sex: Female
  Weight: 56.4 kg

DRUGS (11)
  1. GAMMAGARD [Suspect]
     Indication: SELECTIVE IGG SUBCLASS DEFICIENCY
     Dosage: 25 GRAMS IV Q 4 WEEKS
     Route: 042
     Dates: start: 20050624, end: 20060525
  2. GAMMAGARD [Suspect]
  3. LANTUS [Concomitant]
  4. HUMALOG [Concomitant]
  5. CARAFATE [Concomitant]
  6. REGLAN [Concomitant]
  7. ATENOLOL [Concomitant]
  8. LISINOPRIL [Concomitant]
  9. ATIVAN [Concomitant]
  10. PROTONIX [Concomitant]
  11. ZOLOFT [Concomitant]

REACTIONS (3)
  - GLAUCOMA [None]
  - HYPERKALAEMIA [None]
  - PROTEINURIA [None]
